FAERS Safety Report 9129262 (Version 1)
Quarter: 2013Q1

REPORT INFORMATION
  Report Type: Report from Study
  Country: US (occurrence: US)
  Receive Date: 20130125
  Receipt Date: 20130125
  Transmission Date: 20140127
  Serious: Yes (Other)
  Sender: FDA-Public Use
  Company Number: US-US-EMD SERONO, INC.-7189205

PATIENT
  Sex: Female

DRUGS (2)
  1. REBIF [Suspect]
     Indication: PRODUCT USED FOR UNKNOWN INDICATION
     Route: 058
     Dates: start: 20030609
  2. IBUPROFEN [Concomitant]
     Indication: PREMEDICATION

REACTIONS (8)
  - Optic neuritis [Unknown]
  - Neuropathy peripheral [Unknown]
  - Fall [Unknown]
  - Nasal congestion [Not Recovered/Not Resolved]
  - Injection site induration [Not Recovered/Not Resolved]
  - Muscle spasms [Unknown]
  - Pain [Not Recovered/Not Resolved]
  - Pyrexia [Not Recovered/Not Resolved]
